FAERS Safety Report 22286511 (Version 2)
Quarter: 2023Q2

REPORT INFORMATION
  Report Type: Spontaneous
  Country: JP (occurrence: JP)
  Receive Date: 20230505
  Receipt Date: 20230508
  Transmission Date: 20230721
  Serious: Yes (Hospitalization, Other)
  Sender: FDA-Public Use
  Company Number: JP-ONO-2021JP031357

PATIENT
  Age: 79 Year
  Sex: Male
  Weight: 43.5 kg

DRUGS (40)
  1. OPDIVO [Suspect]
     Active Substance: NIVOLUMAB
     Indication: Gastric cancer
     Dosage: 240 MG
     Route: 042
     Dates: start: 20220117, end: 20220214
  2. PACLITAXEL [Suspect]
     Active Substance: PACLITAXEL
     Indication: Gastric cancer
     Dosage: 110 MG
     Dates: start: 20211025, end: 20211227
  3. DECADRON [Suspect]
     Active Substance: DEXAMETHASONE
     Indication: Prophylaxis
     Dosage: 2 MG, EVERYDAY
     Dates: start: 20210824, end: 20210826
  4. DECADRON [Suspect]
     Active Substance: DEXAMETHASONE
     Dosage: 2 MG, EVERYDAY
     Dates: start: 20210914, end: 20210916
  5. ANAMORELIN HYDROCHLORIDE [Suspect]
     Active Substance: ANAMORELIN HYDROCHLORIDE
     Indication: Cachexia
     Dosage: 100 MG, EVERYDAY
     Route: 048
     Dates: start: 20210823, end: 20220117
  6. GIMERACIL\OTERACIL\TEGAFUR [Suspect]
     Active Substance: GIMERACIL\OTERACIL\OTERACIL POTASSIUM\TEGAFUR
     Indication: Gastric cancer
     Dosage: 100 MG
     Route: 048
     Dates: start: 20210713, end: 20210927
  7. OXALIPLATIN [Suspect]
     Active Substance: OXALIPLATIN
     Indication: Gastric cancer
     Dosage: 150 MG
     Dates: start: 20210713, end: 20210914
  8. OXALIPLATIN [Suspect]
     Active Substance: OXALIPLATIN
     Dosage: 130 MG
     Dates: start: 20220228, end: 20220328
  9. CYRAMZA [Suspect]
     Active Substance: RAMUCIRUMAB
     Indication: Gastric cancer
     Dosage: 370 MG
     Dates: start: 20211025, end: 20211227
  10. ORGADRONE [Suspect]
     Active Substance: DEXAMETHASONE SODIUM PHOSPHATE
     Indication: Prophylaxis
     Dosage: 3.8 MG, EVERYDAY
     Dates: start: 20210823, end: 20210823
  11. ORGADRONE [Suspect]
     Active Substance: DEXAMETHASONE SODIUM PHOSPHATE
     Dosage: 3.8 MG, EVERYDAY
     Dates: start: 20210913, end: 20210913
  12. ORGADRONE [Suspect]
     Active Substance: DEXAMETHASONE SODIUM PHOSPHATE
     Dosage: 7.6 MG, EVERYDAY
     Dates: start: 20211025, end: 20211025
  13. ORGADRONE [Suspect]
     Active Substance: DEXAMETHASONE SODIUM PHOSPHATE
     Dosage: 7.6 MG, EVERYDAY
     Dates: start: 20211101, end: 20211101
  14. ORGADRONE [Suspect]
     Active Substance: DEXAMETHASONE SODIUM PHOSPHATE
     Dosage: 7.6 MG, EVERYDAY
     Dates: start: 20211122, end: 20211122
  15. ORGADRONE [Suspect]
     Active Substance: DEXAMETHASONE SODIUM PHOSPHATE
     Dosage: 7.6 MG, EVERYDAY
     Dates: start: 20211213, end: 20211213
  16. ORGADRONE [Suspect]
     Active Substance: DEXAMETHASONE SODIUM PHOSPHATE
     Dosage: 7.6 MG, EVERYDAY
     Dates: start: 20211227, end: 20211227
  17. EMEND [Suspect]
     Active Substance: APREPITANT
     Indication: Prophylaxis of nausea and vomiting
     Dosage: 125 MG EVERY DAY
     Route: 048
     Dates: start: 20210823, end: 20210823
  18. EMEND [Suspect]
     Active Substance: APREPITANT
     Dosage: 80 MG EVERY DAY
     Route: 048
     Dates: start: 20210824, end: 20210826
  19. EMEND [Suspect]
     Active Substance: APREPITANT
     Dosage: 125 MG EVERY DAY
     Route: 048
     Dates: start: 20210913, end: 20210913
  20. EMEND [Suspect]
     Active Substance: APREPITANT
     Dosage: 80 MG EVERY DAY
     Route: 048
     Dates: start: 20210914, end: 20210916
  21. ZYPREXA [Concomitant]
     Active Substance: OLANZAPINE
     Indication: Prophylaxis
     Dosage: 5 MG, EVERYDAY
     Dates: start: 20210823, end: 20210827
  22. ZYPREXA [Concomitant]
     Active Substance: OLANZAPINE
     Dosage: 5 MG, EVERYDAY
     Dates: start: 20210913, end: 20210917
  23. PYRIDOXAL [Concomitant]
     Active Substance: PYRIDOXAL
     Indication: Prophylaxis
     Dosage: 30 MG, EVERYDAY
     Dates: end: 20211025
  24. DEXTROMETHORPHAN HYDROBROMIDE [Concomitant]
     Active Substance: DEXTROMETHORPHAN HYDROBROMIDE
     Indication: Product used for unknown indication
     Dosage: 15 MG, PRN
     Dates: end: 20220522
  25. ALOXI [Concomitant]
     Active Substance: PALONOSETRON HYDROCHLORIDE
     Indication: Prophylaxis
     Dosage: 0.75 MG, EVERYDAY
     Route: 041
     Dates: start: 20210823, end: 20210823
  26. ALOXI [Concomitant]
     Active Substance: PALONOSETRON HYDROCHLORIDE
     Dosage: 0.75 MG, EVERYDAY
     Route: 041
     Dates: start: 20210913, end: 20210913
  27. GASTER [Concomitant]
     Active Substance: FAMOTIDINE
     Indication: Prophylaxis
     Dosage: 20 MG, EVERYDAY
     Dates: start: 20211025, end: 20211025
  28. GASTER [Concomitant]
     Active Substance: FAMOTIDINE
     Dosage: 20 MG, EVERYDAY
     Dates: start: 20211101, end: 20211101
  29. GASTER [Concomitant]
     Active Substance: FAMOTIDINE
     Dosage: 20 MG, EVERYDAY
     Dates: start: 20211122, end: 20211122
  30. GASTER [Concomitant]
     Active Substance: FAMOTIDINE
     Dosage: 20 MG, EVERYDAY
     Dates: start: 20211213, end: 20211213
  31. GASTER [Concomitant]
     Active Substance: FAMOTIDINE
     Dosage: 20 MG, EVERYDAY
     Dates: start: 20211227, end: 20211227
  32. POLARAMINE [Concomitant]
     Active Substance: DEXCHLORPHENIRAMINE MALEATE
     Indication: Prophylaxis
     Dosage: 5 MG, EVERYDAY
     Dates: start: 20211025, end: 20211025
  33. POLARAMINE [Concomitant]
     Active Substance: DEXCHLORPHENIRAMINE MALEATE
     Dosage: 5 MG, EVERYDAY
     Dates: start: 20211101, end: 20211101
  34. POLARAMINE [Concomitant]
     Active Substance: DEXCHLORPHENIRAMINE MALEATE
     Dosage: 5 MG, EVERYDAY
     Dates: start: 20211122, end: 20211122
  35. POLARAMINE [Concomitant]
     Active Substance: DEXCHLORPHENIRAMINE MALEATE
     Dosage: 5 MG, EVERYDAY
     Dates: start: 20211213, end: 20211213
  36. POLARAMINE [Concomitant]
     Active Substance: DEXCHLORPHENIRAMINE MALEATE
     Dosage: 5 MG, EVERYDAY
     Dates: start: 20211227, end: 20211227
  37. POLARAMINE [Concomitant]
     Active Substance: DEXCHLORPHENIRAMINE MALEATE
     Dosage: 5 MG, EVERYDAY
     Dates: start: 20220117, end: 20220117
  38. POLARAMINE [Concomitant]
     Active Substance: DEXCHLORPHENIRAMINE MALEATE
     Dosage: 5 MG, EVERYDAY
     Dates: start: 20220131, end: 20220131
  39. POLARAMINE [Concomitant]
     Active Substance: DEXCHLORPHENIRAMINE MALEATE
     Dosage: 5 MG, EVERYDAY
     Dates: start: 20220214, end: 20220214
  40. XELODA [Concomitant]
     Active Substance: CAPECITABINE
     Indication: Gastric cancer
     Dosage: 1800 MG
     Dates: start: 20220228, end: 20220403

REACTIONS (7)
  - Interstitial lung disease [Recovering/Resolving]
  - Pneumonia bacterial [Recovering/Resolving]
  - Dehydration [Unknown]
  - Cataract [Recovering/Resolving]
  - Glaucoma [Unknown]
  - Hypomagnesaemia [Recovering/Resolving]
  - Neutrophil count decreased [Recovering/Resolving]

NARRATIVE: CASE EVENT DATE: 20210906
